FAERS Safety Report 6572654-5 (Version None)
Quarter: 2010Q1

REPORT INFORMATION
  Report Type: 
  Country: None (occurrence: None)
  Receive Date: 20100205
  Receipt Date: 20100128
  Transmission Date: 20100710
  Serious: Yes (Hospitalization)
  Sender: FDA-Public Use
  Company Number: US-ABBOTT-09P-163-0616094-00

PATIENT
  Sex: Female
  Weight: 43.811 kg

DRUGS (2)
  1. HUMIRA [Suspect]
     Indication: CROHN'S DISEASE
     Route: 058
     Dates: start: 20071128
  2. HUMIRA [Suspect]
     Dates: start: 20091124

REACTIONS (7)
  - CROHN'S DISEASE [None]
  - DEHYDRATION [None]
  - FISTULA [None]
  - MALAISE [None]
  - MALNUTRITION [None]
  - SUBCUTANEOUS ABSCESS [None]
  - WEIGHT DECREASED [None]
